FAERS Safety Report 9832312 (Version 3)
Quarter: 2014Q1

REPORT INFORMATION
  Report Type: Report from Study
  Country: JP (occurrence: JP)
  Receive Date: 20140121
  Receipt Date: 20140218
  Transmission Date: 20141002
  Serious: Yes (Hospitalization)
  Sender: FDA-Public Use
  Company Number: JP-SA-2014SA005080

PATIENT
  Age: 69 Year
  Sex: Male
  Weight: 60 kg

DRUGS (10)
  1. DOCETAXEL [Suspect]
     Indication: NON-SMALL CELL LUNG CANCER STAGE IV
     Route: 065
     Dates: start: 20130612
  2. BLINDED THERAPY [Suspect]
     Indication: NON-SMALL CELL LUNG CANCER STAGE IV
     Route: 065
     Dates: start: 20130612
  3. MAGLAX [Concomitant]
     Indication: CONSTIPATION
     Dates: start: 20121217
  4. LIDOMEX [Concomitant]
     Indication: DERMATITIS ALLERGIC
     Dosage: FORM-LOTION
     Dates: start: 20130521
  5. RINDERON-VG [Concomitant]
     Indication: DERMATITIS ALLERGIC
     Dosage: LOTION
     Dates: start: 20130618
  6. MUCODYNE [Concomitant]
     Indication: CHRONIC OBSTRUCTIVE PULMONARY DISEASE
     Dates: start: 20130816
  7. INDACATEROL MALEATE [Concomitant]
     Indication: CHRONIC OBSTRUCTIVE PULMONARY DISEASE
     Dosage: INHALER
     Dates: start: 20130816
  8. SPIRIVA [Concomitant]
     Indication: CHRONIC OBSTRUCTIVE PULMONARY DISEASE
     Dosage: INHALER
     Dates: start: 20130816
  9. CRAVIT [Concomitant]
     Indication: EYE DISCHARGE
     Dates: start: 20130816
  10. SODIUM GUALENATE [Concomitant]
     Indication: STOMATITIS
     Dosage: MOUTH WASH
     Dates: start: 20131118

REACTIONS (1)
  - Pneumothorax [Recovered/Resolved]
